FAERS Safety Report 13711411 (Version 1)
Quarter: 2017Q3

REPORT INFORMATION
  Report Type: Spontaneous
  Country: US (occurrence: US)
  Receive Date: 20170701
  Receipt Date: 20170701
  Transmission Date: 20171127
  Serious: Yes (Other)
  Sender: FDA-Public Use
  Company Number: None

PATIENT
  Age: 49 Year
  Sex: Female
  Weight: 166.5 kg

DRUGS (1)
  1. ROPINIROLE. [Suspect]
     Active Substance: ROPINIROLE
     Indication: RESTLESS LEGS SYNDROME
     Dosage: ?          OTHER STRENGTH:MG;QUANTITY:1 TABLET(S);?TWICE A DAY ORAL
     Route: 048
     Dates: start: 20170410

REACTIONS (3)
  - Compulsive shopping [None]
  - Gambling [None]
  - Alcoholism [None]

NARRATIVE: CASE EVENT DATE: 20170410
